FAERS Safety Report 13070904 (Version 19)
Quarter: 2019Q2

REPORT INFORMATION
  Report Type: Spontaneous
  Country: DE (occurrence: DE)
  Receive Date: 20161229
  Receipt Date: 20190517
  Transmission Date: 20190711
  Serious: Yes (Hospitalization, Other)
  Sender: FDA-Public Use
  Company Number: PHHY2016DE072510

PATIENT
  Age: 63 Year
  Sex: Female
  Weight: 53 kg

DRUGS (18)
  1. ZYKADIA [Suspect]
     Active Substance: CERITINIB
     Dosage: 5 DF, UNKNOWN
     Route: 065
  2. ZYKADIA [Suspect]
     Active Substance: CERITINIB
     Indication: NON-SMALL CELL LUNG CANCER
     Dosage: 5 DF, QD (750 MG)
     Route: 065
     Dates: start: 20160408, end: 20160522
  3. ZYKADIA [Suspect]
     Active Substance: CERITINIB
     Dosage: 4 DF, UNKNOWN
     Route: 065
  4. PROLIA [Concomitant]
     Active Substance: DENOSUMAB
     Indication: OSTEOPOROSIS
     Dosage: UNK, UNKNOWN
     Route: 058
  5. VERGENTAN [Concomitant]
     Active Substance: ALIZAPRIDE HYDROCHLORIDE
     Indication: PRODUCT USED FOR UNKNOWN INDICATION
     Dosage: 100 MG, QD, (1-0-0-0)
     Route: 065
     Dates: start: 20160408, end: 20160605
  6. ZYKADIA [Suspect]
     Active Substance: CERITINIB
     Dosage: 4 DF, UNKNOWN
     Route: 065
  7. PANTOPRAZOL [Concomitant]
     Active Substance: PANTOPRAZOLE SODIUM
     Indication: PRODUCT USED FOR UNKNOWN INDICATION
     Dosage: 40 MG, QD
     Route: 065
     Dates: start: 20160601, end: 20160625
  8. VERAPAMIL [Concomitant]
     Active Substance: VERAPAMIL HYDROCHLORIDE
     Indication: PRODUCT USED FOR UNKNOWN INDICATION
     Dosage: 7.5 MG, UNKNOWN
     Route: 065
     Dates: start: 20160530
  9. ALECENSA [Concomitant]
     Active Substance: ALECTINIB HYDROCHLORIDE
     Indication: PRODUCT USED FOR UNKNOWN INDICATION
     Dosage: UNK UKN, UNKNOWN
     Route: 065
  10. ZYKADIA [Suspect]
     Active Substance: CERITINIB
     Dosage: UNK UKN, UNKNOWN
     Route: 065
     Dates: start: 20171023, end: 20171115
  11. AMOCLAV [Concomitant]
     Active Substance: AMOXICILLIN\CLAVULANATE POTASSIUM
     Indication: PRODUCT USED FOR UNKNOWN INDICATION
     Dosage: UNK UKN, UNKNOWN
     Route: 065
     Dates: start: 20160530, end: 20160606
  12. ZYKADIA [Suspect]
     Active Substance: CERITINIB
     Dosage: 2 DF, UNKNOWN
     Route: 065
     Dates: end: 20171024
  13. ZYKADIA [Suspect]
     Active Substance: CERITINIB
     Dosage: 3 DF, QD (3 CAPSULES)
     Route: 065
     Dates: start: 20180525
  14. SILYMARIN [Concomitant]
     Active Substance: DIETARY SUPPLEMENT\HERBALS\MILK THISTLE
     Indication: PRODUCT USED FOR UNKNOWN INDICATION
     Dosage: UNK UNK, QD (1-0-0-0)
     Route: 065
     Dates: start: 20161115
  15. ZYKADIA [Suspect]
     Active Substance: CERITINIB
     Dosage: 4 DF, QD (600 MG)
     Route: 065
     Dates: start: 20160523
  16. CLEXAN [Concomitant]
     Active Substance: ENOXAPARIN SODIUM
     Indication: PRODUCT USED FOR UNKNOWN INDICATION
     Dosage: 60 MG, QD
     Route: 065
     Dates: start: 20160530, end: 20160623
  17. DIGOXIN. [Concomitant]
     Active Substance: DIGOXIN
     Indication: PRODUCT USED FOR UNKNOWN INDICATION
     Dosage: 0.5 MG, UNKNOWN
     Route: 042
     Dates: start: 20160530
  18. DEKRISTOL [Concomitant]
     Active Substance: CHOLECALCIFEROL
     Indication: OSTEOPOROSIS
     Dosage: 20000 OT, QW
     Route: 048

REACTIONS (38)
  - Cholelithiasis [Unknown]
  - Pericardial effusion [Unknown]
  - Metastases to central nervous system [Not Recovered/Not Resolved]
  - Burning sensation [Unknown]
  - Glomerular filtration rate increased [Unknown]
  - Pyrexia [Unknown]
  - Neuropathy peripheral [Unknown]
  - Diarrhoea [Recovered/Resolved]
  - Cough [Recovered/Resolved]
  - Gamma-glutamyltransferase abnormal [Not Recovered/Not Resolved]
  - Disease progression [Unknown]
  - Migraine [Recovered/Resolved]
  - Blood glucose increased [Unknown]
  - Headache [Unknown]
  - Alopecia [Not Recovered/Not Resolved]
  - Pyrexia [Recovered/Resolved]
  - Diverticulum [Unknown]
  - Infection [Recovered/Resolved]
  - Decreased appetite [Not Recovered/Not Resolved]
  - Photosensitivity reaction [Unknown]
  - Concomitant disease aggravated [Unknown]
  - Fatigue [Not Recovered/Not Resolved]
  - Eructation [Not Recovered/Not Resolved]
  - Hair colour changes [Unknown]
  - Migraine [Unknown]
  - Peripheral swelling [Not Recovered/Not Resolved]
  - Vomiting [Not Recovered/Not Resolved]
  - Sleep disorder [Unknown]
  - Nausea [Recovering/Resolving]
  - Aspartate aminotransferase abnormal [Not Recovered/Not Resolved]
  - Metastases to liver [Unknown]
  - Haemangioma of liver [Unknown]
  - Defaecation disorder [Unknown]
  - Fibroadenoma of breast [Unknown]
  - Tenosynovitis [Recovering/Resolving]
  - Heart rate increased [Recovered/Resolved]
  - Alanine aminotransferase abnormal [Not Recovered/Not Resolved]
  - Breast cyst [Unknown]

NARRATIVE: CASE EVENT DATE: 2014
